FAERS Safety Report 15865802 (Version 21)
Quarter: 2021Q2

REPORT INFORMATION
  Report Type: Spontaneous
  Country: CA (occurrence: CA)
  Receive Date: 20190125
  Receipt Date: 20210625
  Transmission Date: 20210716
  Serious: Yes (Other)
  Sender: FDA-Public Use
  Company Number: CA-CELLTRION INC.-2019CA018251

PATIENT

DRUGS (32)
  1. INFLECTRA [Suspect]
     Active Substance: INFLIXIMAB-DYYB
     Dosage: 10 MG/KG (1200 MG), AT 0, 2,6  THEN 5 MG/KG MAINTENANCE EVERY 8 WEEKS
     Route: 042
     Dates: start: 20190220, end: 20190220
  2. INFLECTRA [Suspect]
     Active Substance: INFLIXIMAB-DYYB
     Dosage: 10 MG/KG (1200 MG), AT 0, 2,6  THEN 5 MG/KG MAINTENANCE EVERY 8 WEEKS
     Route: 042
     Dates: start: 20190806, end: 20190806
  3. INFLECTRA [Suspect]
     Active Substance: INFLIXIMAB-DYYB
     Dosage: 1200 MG OR 10 MG PER KG AT 0, 2,6  THEN 5 MG/KG MAINTENANCE EVERY 8 WEEKS
     Route: 042
     Dates: start: 20200717, end: 20200717
  4. ACETOL [Concomitant]
     Dosage: 800 MG, 4X/DAY
     Route: 065
  5. INFLECTRA [Suspect]
     Active Substance: INFLIXIMAB-DYYB
     Dosage: 10 MG/KG (1200 MG), WEEK 0,2,6 THEN 600 MG EVERY 8 WEEKS
     Route: 042
     Dates: start: 20200122, end: 20200122
  6. INFLECTRA [Suspect]
     Active Substance: INFLIXIMAB-DYYB
     Dosage: 10 MG/KG (1200 MG), AT 0, 2,6  THEN 5 MG/KG MAINTENANCE EVERY 8 WEEKS
     Route: 042
     Dates: start: 20200122, end: 20200122
  7. XARELTO [Concomitant]
     Active Substance: RIVAROXABAN
     Dosage: 20 MG, UNK
     Route: 065
  8. INFLECTRA [Suspect]
     Active Substance: INFLIXIMAB-DYYB
     Indication: COLITIS ULCERATIVE
     Dosage: 10 MG/KG (1200 MG)  (HOSPITAL START), AT 0, 2, 6 THEN 600 MG MAINTENANCE EVERY 8 WEEKS
     Route: 042
     Dates: start: 20190109, end: 20190109
  9. XARELTO [Concomitant]
     Active Substance: RIVAROXABAN
     Dosage: UNK
  10. PREDNISONE. [Concomitant]
     Active Substance: PREDNISONE
     Dosage: UNK
     Route: 048
  11. INFLECTRA [Suspect]
     Active Substance: INFLIXIMAB-DYYB
     Dosage: 10 MG/KG (1200 MG), AT 0, 2,6  THEN 5 MG/KG MAINTENANCE EVERY 8 WEEKS
     Route: 042
     Dates: start: 20200511, end: 20200511
  12. METHOTREXATE. [Concomitant]
     Active Substance: METHOTREXATE
     Dosage: UNK
  13. METOPROLOL. [Concomitant]
     Active Substance: METOPROLOL
     Dosage: 25 MG, DAILY (STOP DATE: ???????2019)
  14. INFLECTRA [Suspect]
     Active Substance: INFLIXIMAB-DYYB
     Dosage: 10 MG/KG (1200 MG), AT 0, 2, 6 THEN 5 MG/KG MAINTENANCE EVERY 8 WEEKS
     Route: 042
     Dates: start: 20190124, end: 20190124
  15. INFLECTRA [Suspect]
     Active Substance: INFLIXIMAB-DYYB
     Dosage: 10 MG/KG (1200 MG), AT 0, 2,6  THEN 5 MG/KG MAINTENANCE EVERY 8 WEEKS
     Route: 042
     Dates: start: 20191002, end: 20191002
  16. INFLECTRA [Suspect]
     Active Substance: INFLIXIMAB-DYYB
     Dosage: 600 MG, EVERY 8 WEEKS
     Route: 042
     Dates: start: 20210609
  17. DILTIAZEM HCL TEVA [Concomitant]
     Dosage: 240 MG, DAILY
     Route: 065
     Dates: start: 2019
  18. ASACOL [Concomitant]
     Active Substance: MESALAMINE
     Dosage: 800 MG, 4X/DAY
     Route: 065
  19. SOLU?MEDROL [Concomitant]
     Active Substance: METHYLPREDNISOLONE SODIUM SUCCINATE
     Dosage: 1 DF;DOSAGE NOT AVAILABLE ? UNKNOWN IF ONGOING
     Route: 042
  20. INFLECTRA [Suspect]
     Active Substance: INFLIXIMAB-DYYB
     Dosage: 10 MG/KG (1200 MG), AT 0, 2,6  THEN 5 MG/KG MAINTENANCE EVERY 8 WEEKS
     Route: 042
     Dates: start: 20191127, end: 20191127
  21. INFLECTRA [Suspect]
     Active Substance: INFLIXIMAB-DYYB
     Dosage: 10 MG/KG (1200 MG), AT 0, 2,6  THEN 5 MG/KG MAINTENANCE EVERY 8 WEEKS
     Route: 042
     Dates: start: 20200317, end: 20200317
  22. INFLECTRA [Suspect]
     Active Substance: INFLIXIMAB-DYYB
     Dosage: 1200 MG (10 MG/KG) AT 0, 2,6  THEN 5 MG/KG MAINTENANCE EVERY 8 WEEKS
     Route: 042
     Dates: start: 20201223
  23. INFLECTRA [Suspect]
     Active Substance: INFLIXIMAB-DYYB
     Dosage: 600 MG, EVERY 8 WEEKS
     Route: 042
     Dates: start: 20210414
  24. METHOTREXATE. [Concomitant]
     Active Substance: METHOTREXATE
     Dosage: 2.5 MG, UNK
     Route: 065
  25. PREDNISONE. [Concomitant]
     Active Substance: PREDNISONE
     Dosage: 40 MG, DAILY(2 1/2 TABLETS A DAY THIS WEEK, THEN 2 TABLETS NEXT WEEK))
     Route: 048
  26. INFLECTRA [Suspect]
     Active Substance: INFLIXIMAB-DYYB
     Dosage: 10 MG/KG (1200 MG), AT 0, 2,6  THEN 5 MG/KG MAINTENANCE EVERY 8 WEEKS
     Route: 042
     Dates: start: 20190416, end: 20190416
  27. INFLECTRA [Suspect]
     Active Substance: INFLIXIMAB-DYYB
     Dosage: 10 MG/KG (1200 MG), AT 0, 2,6  THEN 5 MG/KG MAINTENANCE EVERY 8 WEEKS
     Route: 042
     Dates: start: 20190611, end: 20190611
  28. INFLECTRA [Suspect]
     Active Substance: INFLIXIMAB-DYYB
     Dosage: 1200 MG (10 MG/KG) AT 0, 2,6  THEN 5 MG/KG MAINTENANCE EVERY 8 WEEKS
     Route: 042
     Dates: start: 20200901
  29. INFLECTRA [Suspect]
     Active Substance: INFLIXIMAB-DYYB
     Dosage: 1200 MG (10 MG/KG) AT 0, 2,6  THEN 5 MG/KG MAINTENANCE EVERY 8 WEEKS
     Route: 042
     Dates: start: 20210217
  30. VITAMINS [Concomitant]
     Active Substance: VITAMINS
     Dosage: UNK
     Route: 065
  31. ASACOL [Concomitant]
     Active Substance: MESALAMINE
     Dosage: 800 MG, 2X/DAY
  32. PREVNAR [Concomitant]
     Active Substance: PNEUMOCOCCAL 7-VALENT CONJUGATE VACCINE (DIPHTHERIA CRM197 PROTEIN)
     Indication: PNEUMOCOCCAL INFECTION
     Dosage: UNK, SINGLE INJECTION (FIRST DOSE)
     Route: 065
     Dates: start: 2019, end: 2019

REACTIONS (16)
  - Insomnia [Unknown]
  - Abdominal pain upper [Unknown]
  - Mood swings [Unknown]
  - Blood pressure fluctuation [Unknown]
  - Diverticulitis [Recovered/Resolved]
  - Intentional product use issue [Unknown]
  - Condition aggravated [Not Recovered/Not Resolved]
  - Atrial fibrillation [Unknown]
  - Off label use [Unknown]
  - Diverticulum [Recovered/Resolved]
  - Fatigue [Unknown]
  - Off label use [Unknown]
  - Body temperature fluctuation [Unknown]
  - Asthenia [Unknown]
  - Off label use [Unknown]
  - Inappropriate schedule of product administration [Unknown]

NARRATIVE: CASE EVENT DATE: 2019
